FAERS Safety Report 7799610-3 (Version None)
Quarter: 2011Q4

REPORT INFORMATION
  Report Type: 
  Country: None (occurrence: None)
  Receive Date: 20111006
  Receipt Date: 20110926
  Transmission Date: 20120403
  Serious: Yes (Other)
  Sender: FDA-Public Use
  Company Number: US-BAYER-2011-023308

PATIENT
  Age: 48 Year
  Sex: Female
  Weight: 74.376 kg

DRUGS (9)
  1. CLARITIN-D 24 HOUR [Concomitant]
  2. ACIPHEX [Concomitant]
  3. ALBUTEROL [Concomitant]
  4. PREDNISONE [Concomitant]
  5. AMOXICILLIN [Concomitant]
  6. IMITREX [Concomitant]
  7. YASMIN [Suspect]
     Indication: PREMENSTRUAL SYNDROME
     Dosage: UNK
     Dates: start: 20010815, end: 20020119
  8. CIPROFLOXACIN [Concomitant]
  9. LEVAQUIN [Concomitant]

REACTIONS (7)
  - DYSPNOEA [None]
  - SUFFOCATION FEELING [None]
  - PULMONARY EMBOLISM [None]
  - FEAR [None]
  - FATIGUE [None]
  - CHEST PAIN [None]
  - PULMONARY THROMBOSIS [None]
